FAERS Safety Report 14732293 (Version 3)
Quarter: 2018Q2

REPORT INFORMATION
  Report Type: Spontaneous
  Country: US (occurrence: US)
  Receive Date: 20180409
  Receipt Date: 20180501
  Transmission Date: 20180711
  Serious: Yes (Life-Threatening, Hospitalization)
  Sender: FDA-Public Use
  Company Number: US-009507513-1804USA000545

PATIENT
  Age: 23 Year
  Sex: Male
  Weight: 108.84 kg

DRUGS (1)
  1. PREGNYL [Suspect]
     Active Substance: CHORIOGONADOTROPIN ALFA
     Indication: ANDROGEN DEFICIENCY
     Dosage: UNK
     Route: 030
     Dates: start: 201710, end: 201803

REACTIONS (8)
  - Dyspnoea [Recovering/Resolving]
  - Injection site urticaria [Recovering/Resolving]
  - Rash generalised [Recovering/Resolving]
  - Injection site rash [Recovering/Resolving]
  - Urticaria [Recovering/Resolving]
  - Pruritus generalised [Recovering/Resolving]
  - Renal pain [Recovering/Resolving]
  - Injection site pruritus [Recovering/Resolving]

NARRATIVE: CASE EVENT DATE: 201803
